FAERS Safety Report 16156464 (Version 1)
Quarter: 2019Q2

REPORT INFORMATION
  Report Type: Spontaneous
  Country: DE (occurrence: DE)
  Receive Date: 20190404
  Receipt Date: 20190404
  Transmission Date: 20190711
  Serious: Yes (Death, Other)
  Sender: FDA-Public Use
  Company Number: DE-TEVA-2019-DE-1032344

PATIENT
  Age: 81 Year
  Sex: Female

DRUGS (2)
  1. METHOTREXATE. [Suspect]
     Active Substance: METHOTREXATE
     Indication: SKIN DISORDER
  2. IMMUNOSPORIN [Interacting]
     Active Substance: CYCLOSPORINE
     Indication: SKIN DISORDER
     Dosage: 2.5 MG/KG, QD

REACTIONS (6)
  - Pneumonia [Unknown]
  - Cardiac failure [Fatal]
  - Infection [Unknown]
  - Drug interaction [Unknown]
  - Deep vein thrombosis [Unknown]
  - Renal failure [Unknown]
